FAERS Safety Report 6733945-8 (Version None)
Quarter: 2010Q2

REPORT INFORMATION
  Report Type: 
  Country: None (occurrence: None)
  Receive Date: 20100520
  Receipt Date: 20100514
  Transmission Date: 20101027
  Serious: Yes (Other)
  Sender: FDA-Public Use
  Company Number: AU-PFIZER INC-2010060609

PATIENT
  Sex: Female

DRUGS (2)
  1. DIFLUCAN [Suspect]
     Dosage: 100 MG, 1X/DAY
     Dates: start: 20100301
  2. PANAFCORT [Interacting]
     Dosage: UNK

REACTIONS (2)
  - BLOOD GLUCOSE INCREASED [None]
  - DRUG INTERACTION [None]
